FAERS Safety Report 10525140 (Version 2)
Quarter: 2014Q4

REPORT INFORMATION
  Report Type: Spontaneous
  Country: US (occurrence: US)
  Receive Date: 20141017
  Receipt Date: 20141215
  Transmission Date: 20150528
  Serious: No
  Sender: FDA-Public Use
  Company Number: US-009507513-1410USA006978

PATIENT
  Age: 18 Year
  Sex: Female

DRUGS (1)
  1. MAXALT [Suspect]
     Active Substance: RIZATRIPTAN BENZOATE
     Indication: MIGRAINE
     Dosage: UNK UNK, QW
     Route: 048
     Dates: start: 20140930, end: 20141205

REACTIONS (2)
  - Breast feeding [Unknown]
  - Exposure during pregnancy [Unknown]
